FAERS Safety Report 18398315 (Version 2)
Quarter: 2020Q4

REPORT INFORMATION
  Report Type: Report from Study
  Country: None (occurrence: US)
  Receive Date: 20201019
  Receipt Date: 20201027
  Transmission Date: 20210114
  Serious: Yes (Other)
  Sender: FDA-Public Use
  Company Number: US-BIOVITRUM-2020US1308

PATIENT
  Age: 49 Year
  Sex: Female

DRUGS (3)
  1. LEVAQUIN [Concomitant]
     Active Substance: LEVOFLOXACIN
     Indication: PRODUCT USED FOR UNKNOWN INDICATION
  2. KINERET [Suspect]
     Active Substance: ANAKINRA
     Indication: RHEUMATOID ARTHRITIS
     Route: 058
     Dates: start: 20190410
  3. KINERET [Suspect]
     Active Substance: ANAKINRA
     Indication: SJOGREN^S SYNDROME

REACTIONS (8)
  - Headache [Unknown]
  - COVID-19 [Recovered/Resolved]
  - Sinus pain [Unknown]
  - Off label use [Unknown]
  - Feeling abnormal [Unknown]
  - Somnolence [Unknown]
  - Swelling [Unknown]
  - Eye pain [Unknown]

NARRATIVE: CASE EVENT DATE: 20190410
